FAERS Safety Report 20000778 (Version 2)
Quarter: 2021Q4

REPORT INFORMATION
  Report Type: Other
  Country: CO (occurrence: CO)
  Receive Date: 20211027
  Receipt Date: 20211228
  Transmission Date: 20220303
  Serious: Yes (Other)
  Sender: FDA-Public Use
  Company Number: CO-002147023-NVSC2020CO344094

PATIENT
  Age: 47 Year
  Sex: Female
  Weight: 65 kg

DRUGS (7)
  1. XOLAIR [Suspect]
     Active Substance: OMALIZUMAB
     Indication: Chronic spontaneous urticaria
     Route: 058
     Dates: start: 20201103
  2. XOLAIR [Suspect]
     Active Substance: OMALIZUMAB
     Dosage: UNK
     Route: 065
     Dates: start: 20201222
  3. XOLAIR [Suspect]
     Active Substance: OMALIZUMAB
     Dosage: END DATE: ONE MONTH AGO
     Route: 058
  4. XOLAIR [Suspect]
     Active Substance: OMALIZUMAB
     Dosage: START DATE: ONE MONTH AGO
     Route: 058
  5. XOLAIR [Suspect]
     Active Substance: OMALIZUMAB
     Route: 058
  6. FEXOFENADINE [Concomitant]
     Active Substance: FEXOFENADINE HYDROCHLORIDE
     Indication: Chronic spontaneous urticaria
     Dosage: 2 DF, Q8H (STARTED ONE YEAR AGO)
     Route: 048
  7. GEMFIBROZIL [Concomitant]
     Active Substance: GEMFIBROZIL
     Indication: Blood triglycerides increased
     Dosage: 600 MG, QD (STARTED 10 YEARS AGO)
     Route: 048

REACTIONS (21)
  - Blindness [Unknown]
  - Injection site swelling [Unknown]
  - Injection site inflammation [Recovered/Resolved]
  - Injection site pain [Recovered/Resolved]
  - Muscular weakness [Recovered/Resolved]
  - Pruritus [Unknown]
  - Discouragement [Unknown]
  - Malaise [Unknown]
  - Memory impairment [Unknown]
  - Anxiety [Unknown]
  - Contusion [Unknown]
  - Madarosis [Unknown]
  - Headache [Unknown]
  - Hypersensitivity [Recovered/Resolved]
  - Amnesia [Recovering/Resolving]
  - Vision blurred [Recovering/Resolving]
  - Dizziness [Recovered/Resolved]
  - Electric shock sensation [Recovering/Resolving]
  - Skin burning sensation [Recovered/Resolved]
  - Blood pressure increased [Recovering/Resolving]
  - Incorrect dose administered [Unknown]

NARRATIVE: CASE EVENT DATE: 20201222
